FAERS Safety Report 7465878-6 (Version None)
Quarter: 2011Q2

REPORT INFORMATION
  Report Type: 
  Country: None (occurrence: None)
  Receive Date: 20110509
  Receipt Date: 20100423
  Transmission Date: 20111010
  Serious: No
  Sender: FDA-Public Use
  Company Number: US-ALEXION-A201000180

PATIENT
  Sex: Female

DRUGS (3)
  1. SOLIRIS [Suspect]
     Dosage: UNK
  2. DOXYCYCLINE [Suspect]
  3. NORVASC [Suspect]
     Dosage: UNK
     Dates: start: 20090201, end: 20100301

REACTIONS (5)
  - LOCALISED INFECTION [None]
  - HAEMOGLOBIN DECREASED [None]
  - BLOOD LACTATE DEHYDROGENASE INCREASED [None]
  - ARTHRALGIA [None]
  - BLOOD ALKALINE PHOSPHATASE INCREASED [None]
